FAERS Safety Report 13708895 (Version 1)
Quarter: 2017Q3

REPORT INFORMATION
  Report Type: Report from Study
  Country: None (occurrence: BR)
  Receive Date: 20170701
  Receipt Date: 20170701
  Transmission Date: 20171127
  Serious: Yes (Hospitalization, Disabling, Other)
  Sender: FDA-Public Use
  Company Number: BR-ABBVIE-17P-020-2019098-00

PATIENT
  Sex: Male
  Weight: 87 kg

DRUGS (8)
  1. OMEPRAZOLE. [Concomitant]
     Active Substance: OMEPRAZOLE
     Indication: DYSPEPSIA
     Route: 048
  2. OMEPRAZOLE. [Concomitant]
     Active Substance: OMEPRAZOLE
     Indication: DYSPEPSIA
  3. CONCOR [Concomitant]
     Active Substance: BISOPROLOL FUMARATE
     Indication: MITRAL VALVE INCOMPETENCE
     Route: 048
  4. MAREVAN [Concomitant]
     Active Substance: WARFARIN SODIUM
     Indication: MITRAL VALVE INCOMPETENCE
     Dosage: 1 TABLET AND A HALF DAILY.
     Route: 048
  5. OMEPRAZOLE. [Concomitant]
     Active Substance: OMEPRAZOLE
     Indication: GASTRIC DISORDER
  6. AMIORON [Concomitant]
     Indication: PRODUCT USED FOR UNKNOWN INDICATION
     Route: 048
  7. ESC [Concomitant]
     Active Substance: ESCITALOPRAM OXALATE
     Indication: PRODUCT USED FOR UNKNOWN INDICATION
     Route: 048
     Dates: start: 201610
  8. HUMIRA [Suspect]
     Active Substance: ADALIMUMAB
     Indication: CROHN^S DISEASE
     Route: 058
     Dates: start: 20110102

REACTIONS (13)
  - Pyrexia [Recovered/Resolved]
  - Anxiety [Not Recovered/Not Resolved]
  - Skin lesion [Recovered/Resolved]
  - Bacterial infection [Recovering/Resolving]
  - Headache [Recovered/Resolved]
  - Leprosy [Unknown]
  - Loss of consciousness [Recovered/Resolved]
  - Mastication disorder [Recovered/Resolved]
  - Skin lesion [Recovering/Resolving]
  - Torticollis [Recovering/Resolving]
  - Joint stiffness [Recovered/Resolved]
  - Adverse event [Unknown]
  - Nervousness [Unknown]

NARRATIVE: CASE EVENT DATE: 2012
